FAERS Safety Report 21843592 (Version 1)
Quarter: 2023Q1

REPORT INFORMATION
  Report Type: Spontaneous
  Country: KR (occurrence: KR)
  Receive Date: 20230110
  Receipt Date: 20230110
  Transmission Date: 20230418
  Serious: No
  Sender: FDA-Public Use
  Company Number: KR-PFIZER INC-202300005159

PATIENT
  Sex: Male

DRUGS (1)
  1. PAXLOVID [Suspect]
     Active Substance: NIRMATRELVIR\RITONAVIR
     Indication: COVID-19 treatment
     Dosage: 2 DF (1 TABLET OF NIRMATRELVIR AND 1 TABLET OF RITONAVIR)
     Route: 048

REACTIONS (1)
  - Incorrect dose administered [Unknown]
